FAERS Safety Report 18472968 (Version 1)
Quarter: 2020Q4

REPORT INFORMATION
  Report Type: Other
  Country: GB (occurrence: GB)
  Receive Date: 20201106
  Receipt Date: 20201106
  Transmission Date: 20210114
  Serious: Yes (Other)
  Sender: FDA-Public Use
  Company Number: GB-STRIDES ARCOLAB LIMITED-2020SP013340

PATIENT
  Age: 9 Year
  Sex: Female

DRUGS (1)
  1. ETHOSUXIMIDE. [Suspect]
     Active Substance: ETHOSUXIMIDE
     Indication: EPILEPSY
     Dosage: 1250 MILLIGRAM, 5 CAPSULES DAILY
     Route: 048

REACTIONS (3)
  - Product dose omission issue [Unknown]
  - Product colour issue [Unknown]
  - Seizure [Unknown]

NARRATIVE: CASE EVENT DATE: 20201026
